FAERS Safety Report 18588762 (Version 1)
Quarter: 2020Q4

REPORT INFORMATION
  Report Type: Spontaneous
  Country: MY (occurrence: MY)
  Receive Date: 20201207
  Receipt Date: 20201207
  Transmission Date: 20210114
  Serious: No
  Sender: FDA-Public Use
  Company Number: MY-LUPIN PHARMACEUTICALS INC.-2020-08184

PATIENT
  Age: 15 Year
  Sex: Male
  Weight: 54 kg

DRUGS (5)
  1. CARBAMAZEPINE. [Interacting]
     Active Substance: CARBAMAZEPINE
     Indication: SEIZURE
     Dosage: 400 MILLIGRAM, UNK
     Route: 065
  2. LAMOTRIGINE. [Suspect]
     Active Substance: LAMOTRIGINE
     Indication: SEIZURE
     Dosage: 150 MILLIGRAM, UNK
     Route: 065
  3. PERAMPANEL [Interacting]
     Active Substance: PERAMPANEL
     Indication: SEIZURE
     Dosage: 4 MILLIGRAM/KILOGRAM, UNK
     Route: 065
  4. PERAMPANEL [Interacting]
     Active Substance: PERAMPANEL
     Dosage: UNK (DOSE DECREASED)
     Route: 065
  5. SODIUM VALPROATE [Concomitant]
     Active Substance: VALPROATE SODIUM
     Indication: SEIZURE
     Dosage: 1100 MILLIGRAM, UNK
     Route: 065

REACTIONS (3)
  - Somnolence [Unknown]
  - Drug interaction [Unknown]
  - Drug level decreased [Recovered/Resolved]
